FAERS Safety Report 23224056 (Version 2)
Quarter: 2023Q4

REPORT INFORMATION
  Report Type: Report from Study
  Country: US (occurrence: US)
  Receive Date: 20231124
  Receipt Date: 20231128
  Transmission Date: 20240109
  Serious: Yes (Other)
  Sender: FDA-Public Use
  Company Number: US-UCBSA-2023055460

PATIENT
  Age: 45 Year
  Sex: Female

DRUGS (2)
  1. KEPPRA [Suspect]
     Active Substance: LEVETIRACETAM
     Indication: Seizure
     Dosage: UNK
  2. VALIUM [Interacting]
     Active Substance: DIAZEPAM
     Indication: Product used for unknown indication
     Route: 048

REACTIONS (4)
  - Inflammatory bowel disease [Unknown]
  - Brain fog [Unknown]
  - Drug interaction [Unknown]
  - Drug ineffective [Unknown]
